FAERS Safety Report 9128053 (Version 1)
Quarter: 2013Q1

REPORT INFORMATION
  Report Type: Other
  Country: US (occurrence: US)
  Receive Date: 20130125
  Receipt Date: 20130125
  Transmission Date: 20140127
  Serious: Yes (Death)
  Sender: FDA-Public Use
  Company Number: US-FRI-1000042027

PATIENT
  Age: 33 Year
  Sex: Female

DRUGS (4)
  1. LEVOTHROID [Suspect]
  2. BUPROPION [Suspect]
  3. DULOXETINE [Suspect]
  4. CLONAZEPAM [Suspect]

REACTIONS (2)
  - Completed suicide [Fatal]
  - Cardio-respiratory arrest [Fatal]
